FAERS Safety Report 10190697 (Version 1)
Quarter: 2014Q2

REPORT INFORMATION
  Report Type: Spontaneous
  Country: US (occurrence: US)
  Receive Date: 20140523
  Receipt Date: 20140523
  Transmission Date: 20141212
  Serious: No
  Sender: FDA-Public Use
  Company Number: US-BIOGENIDEC-2014BI045002

PATIENT
  Age: 16 Year
  Sex: Female

DRUGS (1)
  1. AVONEX [Suspect]
     Indication: RELAPSING-REMITTING MULTIPLE SCLEROSIS
     Route: 030
     Dates: start: 20140328

REACTIONS (10)
  - Multiple sclerosis [Unknown]
  - Cognitive disorder [Unknown]
  - Visual impairment [Unknown]
  - Balance disorder [Unknown]
  - Dizziness [Unknown]
  - Chills [Recovered/Resolved]
  - Myalgia [Recovered/Resolved]
  - Pyrexia [Recovered/Resolved]
  - Fatigue [Recovered/Resolved]
  - Muscle spasms [Unknown]
